FAERS Safety Report 22068231 (Version 1)
Quarter: 2023Q1

REPORT INFORMATION
  Report Type: Spontaneous
  Country: GB (occurrence: GB)
  Receive Date: 20230307
  Receipt Date: 20230307
  Transmission Date: 20230418
  Serious: Yes (Other)
  Sender: FDA-Public Use
  Company Number: GB-HORIZON THERAPEUTICS-HZN-2023-001724

PATIENT

DRUGS (1)
  1. RAVICTI [Suspect]
     Active Substance: GLYCEROL PHENYLBUTYRATE
     Indication: Product used for unknown indication
     Dosage: (FIRST DOSE)
     Route: 065

REACTIONS (1)
  - Pancytopenia [Unknown]
